FAERS Safety Report 5727237-3 (Version None)
Quarter: 2008Q2

REPORT INFORMATION
  Report Type: 
  Country: None (occurrence: None)
  Receive Date: 20080505
  Receipt Date: 20080429
  Transmission Date: 20081010
  Serious: Yes (Life-Threatening, Hospitalization)
  Sender: FDA-Public Use
  Company Number: CH-NOVOPROD-274867

PATIENT
  Age: 86 Year
  Sex: Female

DRUGS (5)
  1. ESTROFEM [Suspect]
     Indication: MENOPAUSAL DISORDER
     Dosage: 1 MG, QD
     Route: 048
     Dates: end: 20080307
  2. ATACAND [Concomitant]
     Indication: HYPERTENSION
     Dosage: 16 MG, QD
     Route: 048
  3. PLENDIL PLAIN [Concomitant]
     Indication: HYPERTENSION
     Dosage: 10 MG, QD
     Route: 048
  4. DIAMICRON MR [Concomitant]
     Indication: DIABETES MELLITUS
     Dosage: 120 MG, QD
     Route: 048
  5. BIOTIN-MEPHA [Concomitant]
     Dosage: 2.5 MG, QD
     Route: 048
     Dates: end: 20080307

REACTIONS (1)
  - BREAST CANCER METASTATIC [None]
